FAERS Safety Report 7569926-4 (Version None)
Quarter: 2011Q2

REPORT INFORMATION
  Report Type: 
  Country: None (occurrence: None)
  Receive Date: 20110622
  Receipt Date: 20110622
  Transmission Date: 20111010
  Serious: Yes (Other)
  Sender: FDA-Public Use
  Company Number: None

PATIENT
  Age: 65 Year
  Sex: Male
  Weight: 70.3075 kg

DRUGS (1)
  1. TERBINAFINE HCL [Suspect]
     Indication: ONYCHOMYCOSIS
     Dates: start: 20101212, end: 20110130

REACTIONS (6)
  - BLISTER [None]
  - OEDEMA PERIPHERAL [None]
  - ERYTHEMA [None]
  - SKIN CHAPPED [None]
  - NAIL DISORDER [None]
  - SKIN WARM [None]
